FAERS Safety Report 11965445 (Version 1)
Quarter: 2016Q1

REPORT INFORMATION
  Report Type: Spontaneous
  Country: US (occurrence: None)
  Receive Date: 20160125
  Receipt Date: 20160125
  Transmission Date: 20160526
  Serious: Yes (Other)
  Sender: FDA-Public Use
  Company Number: None

PATIENT
  Age: 14 Year
  Sex: Male
  Weight: 49.9 kg

DRUGS (2)
  1. ESCITALOPRAM [Concomitant]
     Active Substance: ESCITALOPRAM OXALATE
  2. DAYTRANA [Suspect]
     Active Substance: METHYLPHENIDATE
     Indication: ATTENTION DEFICIT/HYPERACTIVITY DISORDER
     Dosage: 15MG ONCE DAILY APPLIED TO A SURFACE, USUALLY THE SKIN?
     Route: 061
     Dates: start: 20150901, end: 20160107

REACTIONS (2)
  - Dysarthria [None]
  - Facial paralysis [None]

NARRATIVE: CASE EVENT DATE: 20160107
